FAERS Safety Report 9601049 (Version 2)
Quarter: 2013Q4

REPORT INFORMATION
  Report Type: Spontaneous
  Country: US (occurrence: US)
  Receive Date: 20131004
  Receipt Date: 20131004
  Transmission Date: 20140711
  Serious: No
  Sender: FDA-Public Use
  Company Number: US-AMGEN-USASP2013037020

PATIENT
  Age: 20 Year
  Sex: Female
  Weight: 58.96 kg

DRUGS (7)
  1. ENBREL [Suspect]
     Indication: PRODUCT USED FOR UNKNOWN INDICATION
     Dosage: 50 MG, QWK
     Route: 058
  2. RECLIPSEN [Concomitant]
     Dosage: UNK
     Route: 048
  3. IRON [Concomitant]
     Dosage: UNK
     Route: 048
  4. ZYRTEC [Concomitant]
     Dosage: 5 MG, UNK
     Route: 048
  5. SINGULAIR [Concomitant]
     Dosage: 10 MG, UNK
  6. METHOTREXATE [Concomitant]
     Dosage: 2.5 MG, UNK
  7. FOLIC ACID [Concomitant]
     Dosage: UNK

REACTIONS (4)
  - Injection site extravasation [Unknown]
  - Therapeutic response decreased [Unknown]
  - Injection site rash [Unknown]
  - Injection site erythema [Unknown]
